FAERS Safety Report 22237372 (Version 1)
Quarter: 2023Q2

REPORT INFORMATION
  Report Type: Spontaneous
  Country: US (occurrence: US)
  Receive Date: 20230421
  Receipt Date: 20230421
  Transmission Date: 20230721
  Serious: No
  Sender: FDA-Public Use
  Company Number: US-GLAXOSMITHKLINE-US2023AMR056508

PATIENT
  Age: 59 Year
  Sex: Female
  Weight: 71.655 kg

DRUGS (1)
  1. ZEJULA [Suspect]
     Active Substance: NIRAPARIB
     Indication: Uterine cancer
     Dosage: 100 MG, Z (IN MORNING)
     Route: 048
     Dates: start: 202110, end: 20230405

REACTIONS (4)
  - Platelet count decreased [Unknown]
  - Nausea [Unknown]
  - Myalgia [Unknown]
  - Product use in unapproved indication [Unknown]

NARRATIVE: CASE EVENT DATE: 20230405
